FAERS Safety Report 24692682 (Version 1)
Quarter: 2024Q4

REPORT INFORMATION
  Report Type: Spontaneous
  Country: US (occurrence: None)
  Receive Date: 20241203
  Receipt Date: 20241203
  Transmission Date: 20250115
  Serious: Yes (Hospitalization)
  Sender: Public
  Company Number: None

PATIENT
  Age: 46 Year
  Sex: Male
  Weight: 81 kg

DRUGS (1)
  1. ERENUMAB-AOOE [Suspect]
     Active Substance: ERENUMAB-AOOE
     Indication: Schizoaffective disorder
     Dosage: OTHER FREQUENCY : UD;?
     Route: 058

REACTIONS (4)
  - Delusion [None]
  - Hallucination [None]
  - Hypervigilance [None]
  - Psychotic disorder [None]

NARRATIVE: CASE EVENT DATE: 20240913
